FAERS Safety Report 12251999 (Version 1)
Quarter: 2016Q2

REPORT INFORMATION
  Report Type: Spontaneous
  Country: DE (occurrence: DE)
  Receive Date: 20160411
  Receipt Date: 20160411
  Transmission Date: 20160815
  Serious: Yes (Other)
  Sender: FDA-Public Use
  Company Number: DE-ACCORD-039511

PATIENT
  Age: 28 Year
  Sex: Female

DRUGS (5)
  1. ADALIMUMAB [Suspect]
     Active Substance: ADALIMUMAB
     Indication: DERMATOMYOSITIS
  2. METHOTREXATE [Suspect]
     Active Substance: METHOTREXATE
     Indication: DERMATOMYOSITIS
  3. CISPLATIN. [Concomitant]
     Active Substance: CISPLATIN
     Indication: THYMIC CANCER METASTATIC
  4. PACLITAXEL/PACLITAXEL LIPOSOME [Suspect]
     Active Substance: PACLITAXEL
     Indication: THYMIC CANCER METASTATIC
     Dosage: RECEIVED SIX CYCLES.
  5. AZATHIOPRINE. [Suspect]
     Active Substance: AZATHIOPRINE
     Indication: DERMATOMYOSITIS

REACTIONS (4)
  - Maternal exposure during pregnancy [Unknown]
  - Treatment failure [Unknown]
  - Polyneuropathy [Unknown]
  - Off label use [Unknown]
